FAERS Safety Report 9132783 (Version 2)
Quarter: 2013Q3

REPORT INFORMATION
  Report Type: Report from Study
  Country: GR (occurrence: GR)
  Receive Date: 20130301
  Receipt Date: 20130708
  Transmission Date: 20140515
  Serious: Yes (Hospitalization)
  Sender: FDA-Public Use
  Company Number: GR-ABBOTT-13P-066-1053912-00

PATIENT
  Age: 38 Year
  Sex: Female
  Weight: 48 kg

DRUGS (3)
  1. HUMIRA [Suspect]
     Indication: CROHN^S DISEASE
     Dosage: 160 MG (BASELINE)/80 MG (WEEK 2)
     Route: 058
     Dates: start: 20081113
  2. HUMIRA [Suspect]
     Route: 058
     Dates: start: 20091008, end: 20121101
  3. AZATHIOPRINE [Concomitant]
     Indication: THERAPEUTIC RESPONSE DECREASED
     Dates: start: 20080201

REACTIONS (1)
  - Intestinal obstruction [Recovered/Resolved]
